FAERS Safety Report 6522361-X (Version None)
Quarter: 2009Q4

REPORT INFORMATION
  Report Type: 
  Country: None (occurrence: None)
  Receive Date: 20091229
  Receipt Date: 20091229
  Transmission Date: 20100525
  Serious: No
  Sender: FDA-Public Use
  Company Number: None

PATIENT
  Age: 81 Year
  Sex: Male
  Weight: 91 kg

DRUGS (16)
  1. INSULIN ASPART [Suspect]
     Indication: HYPERGLYCAEMIA
     Dosage: 110 UNITS SQ
     Route: 058
     Dates: start: 20091006
  2. REGULAR INSULIN [Suspect]
     Dosage: 500 UNITS/HR IV
     Route: 042
     Dates: start: 20091006
  3. HEPARIN [Concomitant]
  4. CEFAZOLIN [Concomitant]
  5. HETASTARCH 6% IN 0.9% SODIUM CHLORIDE IN PLASTIC CONTAINER [Concomitant]
  6. HYDRALAZINE HCL [Concomitant]
  7. POTASSIUM CHLORIDE [Concomitant]
  8. RANITIDINE [Concomitant]
  9. TERAZOSIN HCL [Concomitant]
  10. SIMVASTATIN [Concomitant]
  11. VANCOMYCIN [Concomitant]
  12. AMIODARONE HCL [Concomitant]
  13. EPINEPHRINE [Concomitant]
  14. MILRINONE [Concomitant]
  15. NOREPI [Concomitant]
  16. PHENYLEPHRINE [Concomitant]

REACTIONS (2)
  - BLOOD GLUCOSE DECREASED [None]
  - BLOOD GLUCOSE INCREASED [None]
